FAERS Safety Report 19100490 (Version 2)
Quarter: 2023Q1

REPORT INFORMATION
  Report Type: Report from Study
  Country: FR (occurrence: None)
  Receive Date: 20210407
  Receipt Date: 20230316
  Transmission Date: 20230417
  Serious: Yes (Hospitalization)
  Sender: FDA-Public Use
  Company Number: FR-ROCHE-2705575

PATIENT
  Age: 82 Year
  Sex: Female

DRUGS (6)
  1. RITUXIMAB [Suspect]
     Active Substance: RITUXIMAB
     Indication: Mantle cell lymphoma
     Dosage: ADMINISTERED IN 8 WEEK CYCLES FOR 24 MONTHS. ON 04/FEB/2019 ADMINISTERED THE MOST RECENT DOSE OF RIT
     Route: 058
     Dates: start: 20180813
  2. RITUXIMAB [Suspect]
     Active Substance: RITUXIMAB
     Indication: Mantle cell lymphoma
     Dosage: ON DAY 1 AS PER PROTOCOL
     Route: 041
     Dates: start: 20180105, end: 20180530
  3. CYCLOPHOSPHAMIDE [Suspect]
     Active Substance: CYCLOPHOSPHAMIDE
     Indication: Mantle cell lymphoma
     Dosage: ON DAY 1
     Route: 042
     Dates: start: 20180105, end: 20180603
  4. DOXORUBICIN [Suspect]
     Active Substance: DOXORUBICIN
     Indication: Mantle cell lymphoma
     Dosage: ON DAY 1
     Route: 042
     Dates: start: 20180105, end: 20180603
  5. PREDNISONE [Suspect]
     Active Substance: PREDNISONE
     Indication: Mantle cell lymphoma
     Dosage: DAY 1-5
     Route: 048
     Dates: start: 20180103, end: 20180603
  6. VINCRISTINE [Suspect]
     Active Substance: VINCRISTINE
     Indication: Mantle cell lymphoma
     Dosage: (2MG CAP) ON DAY 1
     Route: 042
     Dates: start: 20180103, end: 20180603

REACTIONS (1)
  - Myelodysplastic syndrome [Not Recovered/Not Resolved]

NARRATIVE: CASE EVENT DATE: 20200622
